FAERS Safety Report 5837028-0 (Version None)
Quarter: 2008Q3

REPORT INFORMATION
  Report Type: 
  Country: None (occurrence: None)
  Receive Date: 20080807
  Receipt Date: 20070904
  Transmission Date: 20090109
  Serious: No
  Sender: FDA-Public Use
  Company Number: US-BRISTOL-MYERS SQUIBB COMPANY-13896899

PATIENT
  Sex: Male
  Weight: 82 kg

DRUGS (7)
  1. GLUCOVANCE [Suspect]
     Indication: DIABETES MELLITUS
     Dosage: INCREASED FROM 2.5MG/500MG TWICE A DAY TO 2.5 MG/500 MG FOUR TIMES A DAY
  2. PROTONIX [Concomitant]
  3. AVAPRO [Concomitant]
  4. LYRICA [Concomitant]
  5. AVACOR [Concomitant]
  6. ASPIRIN [Concomitant]
  7. MULTI-VITAMIN [Concomitant]

REACTIONS (1)
  - DRUG INEFFECTIVE [None]
